FAERS Safety Report 9820543 (Version 1)
Quarter: 2014Q1

REPORT INFORMATION
  Report Type: Spontaneous
  Country: US (occurrence: US)
  Receive Date: 20140116
  Receipt Date: 20140116
  Transmission Date: 20141002
  Serious: Yes (Other)
  Sender: FDA-Public Use
  Company Number: US-B.I. PHARMACEUTICALS,INC./RIDGEFIELD-2014-BI-01437GD

PATIENT
  Age: 52 Year
  Sex: Male

DRUGS (4)
  1. PRAMIPEXOLE [Suspect]
     Indication: PARKINSON^S DISEASE
  2. AMANTADINE [Suspect]
     Indication: PARKINSON^S DISEASE
  3. BENZTROPINE [Suspect]
     Indication: PARKINSON^S DISEASE
  4. LEVODOPA-CARBIDOPA [Concomitant]
     Indication: PARKINSON^S DISEASE

REACTIONS (5)
  - Impulse-control disorder [Recovered/Resolved]
  - Pathological gambling [Recovered/Resolved]
  - Food craving [Recovered/Resolved]
  - Weight increased [Recovered/Resolved]
  - Memory impairment [Unknown]
